FAERS Safety Report 4706784-7 (Version None)
Quarter: 2005Q3

REPORT INFORMATION
  Report Type: 
  Country: None (occurrence: None)
  Receive Date: 20050705
  Receipt Date: 20050624
  Transmission Date: 20060218
  Serious: Yes (Life-Threatening, Hospitalization)
  Sender: FDA-Public Use
  Company Number: S05-USA-02633-01

PATIENT
  Age: 70 Year
  Sex: Male

DRUGS (10)
  1. NAMENDA [Suspect]
     Indication: DEMENTIA
     Dosage: 10 MG BID PO
     Route: 048
     Dates: start: 20050501, end: 20050501
  2. MOXIFLOXACIN [Suspect]
     Indication: PNEUMONIA
     Dates: start: 20050501, end: 20050501
  3. HYDROCHLOROTHIAZIDE [Concomitant]
  4. METOPROLOL XL (METOPROLOL) [Concomitant]
  5. SYNTHROID [Concomitant]
  6. MIRTAZAPINE [Concomitant]
  7. FINASTERIDE [Concomitant]
  8. LISINOPRIL [Concomitant]
  9. ASPIRIN [Concomitant]
  10. ZOCOR [Concomitant]

REACTIONS (11)
  - AORTIC ANEURYSM [None]
  - BENIGN PROSTATIC HYPERPLASIA [None]
  - BLOOD POTASSIUM DECREASED [None]
  - CAROTID ARTERY STENOSIS [None]
  - ELECTROCARDIOGRAM QT PROLONGED [None]
  - HYPERTENSION [None]
  - HYPOMAGNESAEMIA [None]
  - HYPOTHYROIDISM [None]
  - MYOCARDIAL ISCHAEMIA [None]
  - SYNCOPE [None]
  - VENTRICULAR DYSFUNCTION [None]
